FAERS Safety Report 7545744-8 (Version None)
Quarter: 2011Q2

REPORT INFORMATION
  Report Type: 
  Country: None (occurrence: None)
  Receive Date: 20110524
  Receipt Date: 20110308
  Transmission Date: 20111010
  Serious: No
  Sender: FDA-Public Use
  Company Number: 027077

PATIENT
  Sex: Male
  Weight: 86.1834 kg

DRUGS (2)
  1. M.V.I. [Concomitant]
  2. CIMZIA [Suspect]
     Indication: CROHN'S DISEASE
     Dosage: (2 PFS SUBCUTANEOUS)
     Route: 058
     Dates: start: 20110111

REACTIONS (8)
  - DIARRHOEA [None]
  - INSOMNIA [None]
  - LYMPHADENOPATHY [None]
  - FREQUENT BOWEL MOVEMENTS [None]
  - ABDOMINAL PAIN [None]
  - ABDOMINAL DISCOMFORT [None]
  - MALAISE [None]
  - HYPERSOMNIA [None]
